FAERS Safety Report 17069898 (Version 2)
Quarter: 2019Q4

REPORT INFORMATION
  Report Type: Spontaneous
  Country: IN (occurrence: IN)
  Receive Date: 20191125
  Receipt Date: 20191129
  Transmission Date: 20200122
  Serious: Yes (Hospitalization, Other)
  Sender: FDA-Public Use
  Company Number: IN-SA-2019SA318046

PATIENT
  Age: 52 Year
  Sex: Male

DRUGS (5)
  1. EMPAGLIFLOZIN [Suspect]
     Active Substance: EMPAGLIFLOZIN
     Indication: PRODUCT USED FOR UNKNOWN INDICATION
     Dosage: 25 MG
  2. SALINE [SODIUM CHLORIDE] [Concomitant]
     Active Substance: SODIUM CHLORIDE
     Dosage: UNK UNK, UNK
  3. METFORMIN HYDROCHLORIDE. [Suspect]
     Active Substance: METFORMIN HYDROCHLORIDE
     Indication: TYPE 2 DIABETES MELLITUS
     Dosage: 1000 MG, UNK
  4. INSULIN GLARGINE [Suspect]
     Active Substance: INSULIN GLARGINE
     Dosage: 20 U
  5. PANTOPRAZOLE [Concomitant]
     Active Substance: PANTOPRAZOLE
     Dosage: UNK UNK, UNK

REACTIONS (12)
  - Nausea [Recovered/Resolved]
  - Malaise [Recovered/Resolved]
  - Vomiting [Recovered/Resolved]
  - Blood ketone body present [Unknown]
  - Drug intolerance [Unknown]
  - Euglycaemic diabetic ketoacidosis [Recovered/Resolved]
  - Gastrointestinal disorder [Recovered/Resolved]
  - Hypophagia [Recovered/Resolved]
  - Chest discomfort [Recovered/Resolved]
  - Retching [Recovered/Resolved]
  - Asthenia [Recovered/Resolved]
  - Ketonuria [Unknown]
